FAERS Safety Report 10156416 (Version 2)
Quarter: 2014Q2

REPORT INFORMATION
  Report Type: Spontaneous
  Country: US (occurrence: US)
  Receive Date: 20140507
  Receipt Date: 20140519
  Transmission Date: 20141212
  Serious: No
  Sender: FDA-Public Use
  Company Number: US-009507513-1404USA014252

PATIENT
  Sex: Female

DRUGS (2)
  1. OXYTROL FOR WOMEN [Suspect]
     Indication: HYPERTONIC BLADDER
     Dosage: UNK, Q4D
     Route: 062
  2. OXYTROL FOR WOMEN [Suspect]
     Indication: INCONTINENCE

REACTIONS (5)
  - Application site inflammation [Unknown]
  - Application site irritation [Unknown]
  - Application site rash [Unknown]
  - Incorrect drug administration duration [Unknown]
  - Product closure removal difficult [Unknown]
